FAERS Safety Report 5390879-1 (Version None)
Quarter: 2007Q3

REPORT INFORMATION
  Report Type: 
  Country: None (occurrence: None)
  Receive Date: 20070716
  Receipt Date: 20070704
  Transmission Date: 20080115
  Serious: Yes (Disabling)
  Sender: FDA-Public Use
  Company Number: GXKR2007US05805

PATIENT
  Sex: Male

DRUGS (1)
  1. AMIODARONE HCL [Suspect]

REACTIONS (3)
  - CONDITION AGGRAVATED [None]
  - IMMOBILE [None]
  - MUSCLE RIGIDITY [None]
